FAERS Safety Report 7993089-4 (Version None)
Quarter: 2011Q4

REPORT INFORMATION
  Report Type: 
  Country: None (occurrence: None)
  Receive Date: 20111219
  Receipt Date: 20110524
  Transmission Date: 20120403
  Serious: No
  Sender: FDA-Public Use
  Company Number: US-ASTRAZENECA-2011SE32190

PATIENT
  Age: 46 Year
  Sex: Female
  Weight: 113.4 kg

DRUGS (4)
  1. CRESTOR [Suspect]
     Indication: BLOOD TRIGLYCERIDES INCREASED
     Route: 048
  2. AMLODIPINE [Concomitant]
  3. ATENOLOL [Concomitant]
  4. DOXAZOSIN MESYLATE [Concomitant]

REACTIONS (2)
  - OEDEMA PERIPHERAL [None]
  - JOINT SWELLING [None]
